FAERS Safety Report 8191106-2 (Version None)
Quarter: 2012Q1

REPORT INFORMATION
  Report Type: 
  Country: None (occurrence: None)
  Receive Date: 20120307
  Receipt Date: 20120301
  Transmission Date: 20120608
  Serious: Yes (Other)
  Sender: FDA-Public Use
  Company Number: US-GLAXOSMITHKLINE-A0968226A

PATIENT
  Age: 68 Year
  Sex: Male

DRUGS (8)
  1. BROVANA [Concomitant]
  2. OXYGEN [Concomitant]
  3. SINGULAIR [Concomitant]
  4. SPIRIVA [Concomitant]
  5. JALYN [Suspect]
     Indication: BENIGN PROSTATIC HYPERPLASIA
     Dosage: 1CAP PER DAY
     Route: 048
     Dates: start: 20120224
  6. SEPTRA [Concomitant]
  7. SYMBICORT [Concomitant]
  8. UNSPECIFIED MEDICATION [Concomitant]

REACTIONS (3)
  - PAIN [None]
  - HEPATIC ENZYME INCREASED [None]
  - PYREXIA [None]
